FAERS Safety Report 9225694 (Version 1)
Quarter: 2013Q2

REPORT INFORMATION
  Report Type: Spontaneous
  Country: US (occurrence: None)
  Receive Date: 20130410
  Receipt Date: 20130410
  Transmission Date: 20140414
  Serious: Yes (Hospitalization)
  Sender: FDA-Public Use
  Company Number: None

PATIENT
  Age: 74 Year
  Sex: Male
  Weight: 73.1 kg

DRUGS (17)
  1. PLAVIX [Suspect]
     Indication: CEREBROVASCULAR ACCIDENT
     Dosage: 75MG DAILY PO?CHRONIC
     Route: 048
  2. ASA [Suspect]
     Dosage: 81MG DAILY PO?CHRONIC WITH RECENT INCREASE
     Route: 048
  3. ATENOLOL [Concomitant]
  4. EFFEXOR XR [Concomitant]
  5. KEPPRA [Concomitant]
  6. ZETIA [Concomitant]
  7. NORVASC [Concomitant]
  8. NIASPAN [Concomitant]
  9. LISINOPRIL [Concomitant]
  10. AVODART [Concomitant]
  11. APAP/CODEINE [Concomitant]
  12. MVI [Concomitant]
  13. VALTREX [Concomitant]
  14. SIMVASTATIN [Concomitant]
  15. COENZ Q [Concomitant]
  16. VIT B COMPLEX [Concomitant]
  17. VIT C [Concomitant]

REACTIONS (6)
  - Dizziness [None]
  - Faeces discoloured [None]
  - Haemorrhagic anaemia [None]
  - Syncope [None]
  - Upper gastrointestinal haemorrhage [None]
  - Gastric ulcer haemorrhage [None]
